FAERS Safety Report 8567365 (Version 17)
Quarter: 2018Q4

REPORT INFORMATION
  Report Type: Report from Study
  Country: JP (occurrence: JP)
  Receive Date: 20120517
  Receipt Date: 20181002
  Transmission Date: 20190205
  Serious: Yes (Hospitalization, Other)
  Sender: FDA-Public Use
  Company Number: PHHY2012JP040207

PATIENT
  Age: 3 Year
  Sex: Female
  Weight: 14 kg

DRUGS (33)
  1. ILARIS [Suspect]
     Active Substance: CANAKINUMAB
     Dosage: 100 MG, QD
     Route: 058
     Dates: start: 20131125, end: 20131125
  2. ILARIS [Suspect]
     Active Substance: CANAKINUMAB
     Dosage: 100 MG, QD
     Route: 058
     Dates: start: 20130704, end: 20130704
  3. ILARIS [Suspect]
     Active Substance: CANAKINUMAB
     Dosage: 100 MG, UNK
     Route: 058
     Dates: start: 20130704, end: 20130704
  4. ILARIS [Suspect]
     Active Substance: CANAKINUMAB
     Dosage: 100 MG, UNK
     Route: 058
     Dates: start: 20140114, end: 20140114
  5. ILARIS [Suspect]
     Active Substance: CANAKINUMAB
     Dosage: 60 MG, QD
     Route: 058
     Dates: start: 20121203, end: 20121203
  6. ILARIS [Suspect]
     Active Substance: CANAKINUMAB
     Dosage: 60 MG, QD
     Route: 058
     Dates: start: 20130130, end: 20130130
  7. ILARIS [Suspect]
     Active Substance: CANAKINUMAB
     Indication: FAMILIAL COLD AUTOINFLAMMATORY SYNDROME
     Dosage: 30 MG, UNK
     Route: 058
     Dates: start: 20120319, end: 20120319
  8. ILARIS [Suspect]
     Active Substance: CANAKINUMAB
     Dosage: 60 MG, UNK
     Route: 058
     Dates: start: 20121203, end: 20121203
  9. ILARIS [Suspect]
     Active Substance: CANAKINUMAB
     Dosage: 60 MG, UNK
     Route: 058
     Dates: start: 20130130, end: 20130130
  10. ILARIS [Suspect]
     Active Substance: CANAKINUMAB
     Dosage: 100 MG, UNK
     Route: 058
     Dates: start: 20130819, end: 20130819
  11. ILARIS [Suspect]
     Active Substance: CANAKINUMAB
     Dosage: 100 MG, UNK
     Route: 058
     Dates: start: 20131125, end: 20131125
  12. ILARIS [Suspect]
     Active Substance: CANAKINUMAB
     Dosage: 30 MG, QD
     Route: 058
     Dates: start: 20120319, end: 20120319
  13. ILARIS [Suspect]
     Active Substance: CANAKINUMAB
     Dosage: 60 MG, QD
     Route: 058
     Dates: start: 20121009, end: 20121009
  14. ILARIS [Suspect]
     Active Substance: CANAKINUMAB
     Dosage: 60 MG, UNK
     Route: 058
     Dates: start: 20120618, end: 20120618
  15. ILARIS [Suspect]
     Active Substance: CANAKINUMAB
     Dosage: 100 MG, UNK
     Route: 058
     Dates: start: 20140304, end: 20140304
  16. ILARIS [Suspect]
     Active Substance: CANAKINUMAB
     Dosage: 60 MG, QD
     Route: 058
     Dates: start: 20120813, end: 20120813
  17. ILARIS [Suspect]
     Active Substance: CANAKINUMAB
     Dosage: 100 MG, QD
     Route: 058
     Dates: start: 20130509, end: 20130509
  18. ILARIS [Suspect]
     Active Substance: CANAKINUMAB
     Dosage: 100 MG, QD
     Route: 058
     Dates: start: 20131007, end: 20131007
  19. ILARIS [Suspect]
     Active Substance: CANAKINUMAB
     Dosage: 100 MG, QD
     Route: 058
     Dates: start: 20140114, end: 20140114
  20. ILARIS [Suspect]
     Active Substance: CANAKINUMAB
     Dosage: 60 MG, UNK
     Route: 058
     Dates: start: 20121009, end: 20121009
  21. ILARIS [Suspect]
     Active Substance: CANAKINUMAB
     Dosage: 100 MG, UNK
     Route: 058
     Dates: start: 20130509, end: 20130509
  22. ILARIS [Suspect]
     Active Substance: CANAKINUMAB
     Dosage: 100 MG, UNK
     Route: 058
     Dates: start: 20131007, end: 20131007
  23. ILARIS [Suspect]
     Active Substance: CANAKINUMAB
     Dosage: 60 MG, QD
     Route: 058
     Dates: start: 20120423, end: 20120423
  24. ILARIS [Suspect]
     Active Substance: CANAKINUMAB
     Dosage: 60 MG, QD
     Route: 058
     Dates: start: 20120618, end: 20120618
  25. ILARIS [Suspect]
     Active Substance: CANAKINUMAB
     Dosage: 100 MG, QD
     Route: 058
     Dates: start: 20130314, end: 20130314
  26. ILARIS [Suspect]
     Active Substance: CANAKINUMAB
     Dosage: 100 MG, QD
     Route: 058
     Dates: start: 20130819, end: 20130819
  27. ILARIS [Suspect]
     Active Substance: CANAKINUMAB
     Dosage: 100 MG, QD
     Route: 058
     Dates: start: 20140304, end: 20140304
  28. MINOMYCIN [Suspect]
     Active Substance: MINOCYCLINE HYDROCHLORIDE
     Indication: INFECTION
     Dosage: UNK
     Route: 065
  29. ILARIS [Suspect]
     Active Substance: CANAKINUMAB
     Dosage: 60 MG, UNK
     Route: 058
     Dates: start: 20120423, end: 20120423
  30. ILARIS [Suspect]
     Active Substance: CANAKINUMAB
     Dosage: 60 MG, UNK
     Route: 058
     Dates: start: 20120813, end: 20120813
  31. ILARIS [Suspect]
     Active Substance: CANAKINUMAB
     Dosage: 100 MG, UNK
     Route: 058
     Dates: start: 20130314, end: 20130314
  32. ILARIS [Suspect]
     Active Substance: CANAKINUMAB
     Dosage: UNK
     Route: 058
  33. OZEX [Concomitant]
     Active Substance: TOSUFLOXACIN TOSYLATE
     Indication: PRODUCT USED FOR UNKNOWN INDICATION
     Dosage: 180 MG, QD
     Route: 048
     Dates: start: 20121203, end: 20121216

REACTIONS (36)
  - Bronchitis [Recovered/Resolved]
  - Pollakiuria [Recovered/Resolved]
  - Cystitis [Recovered/Resolved]
  - Tonsillitis [Recovered/Resolved]
  - Upper respiratory tract infection [Recovered/Resolved]
  - Upper respiratory tract infection [Recovered/Resolved]
  - Dizziness [Unknown]
  - Oropharyngeal pain [Unknown]
  - Upper respiratory tract infection [Recovered/Resolved]
  - Upper respiratory tract infection [Recovering/Resolving]
  - Musculoskeletal stiffness [Recovering/Resolving]
  - Iron deficiency anaemia [Recovered/Resolved]
  - Upper respiratory tract infection [Recovered/Resolved]
  - Infection [Recovering/Resolving]
  - Stomatitis [Recovering/Resolving]
  - Pyrexia [Recovered/Resolved]
  - Vomiting [Unknown]
  - Acetonaemic vomiting [Recovered/Resolved]
  - Upper respiratory tract infection [Recovered/Resolved]
  - Gastroenteritis [Recovering/Resolving]
  - Upper respiratory tract infection [Recovered/Resolved]
  - Neutropenia [Recovered/Resolved]
  - Upper respiratory tract infection [Recovered/Resolved]
  - Upper respiratory tract infection [Recovered/Resolved]
  - Upper respiratory tract infection [Recovered/Resolved]
  - Cough [Recovering/Resolving]
  - Pyrexia [Unknown]
  - Feeding disorder [Unknown]
  - Pneumonia [Recovered/Resolved]
  - Tonsillitis [Recovered/Resolved]
  - Streptococcal infection [Recovered/Resolved]
  - Poisoning [Recovered/Resolved]
  - Eating disorder [Recovered/Resolved]
  - Upper respiratory tract infection [Recovered/Resolved]
  - Pain [Recovering/Resolving]
  - Diarrhoea [Recovering/Resolving]

NARRATIVE: CASE EVENT DATE: 20120429
